FAERS Safety Report 17848503 (Version 1)
Quarter: 2020Q2

REPORT INFORMATION
  Report Type: Spontaneous
  Country: SG (occurrence: SG)
  Receive Date: 20200602
  Receipt Date: 20200602
  Transmission Date: 20200714
  Serious: Yes (Death, Other)
  Sender: FDA-Public Use
  Company Number: SG-VISTAPHARM, INC.-VER202005-001042

PATIENT
  Age: 82 Year
  Sex: Male

DRUGS (10)
  1. PREDNISOLONE. [Suspect]
     Active Substance: PREDNISOLONE
     Dosage: 5 MG
     Route: 065
     Dates: start: 201909, end: 201912
  2. ACYCLOVIR. [Concomitant]
     Active Substance: ACYCLOVIR
     Indication: ENCEPHALITIS
     Dosage: UNKNOWN
     Route: 042
  3. AMPICILLIN [Concomitant]
     Active Substance: AMPICILLIN
     Indication: ENCEPHALITIS
     Dosage: UNKNOWN
     Route: 042
  4. CEFEPIME [Concomitant]
     Active Substance: CEFEPIME HYDROCHLORIDE
     Indication: PRODUCT USED FOR UNKNOWN INDICATION
     Dosage: UNKNOWN
     Route: 042
  5. CEFTRIAXONE. [Concomitant]
     Active Substance: CEFTRIAXONE
     Indication: ENCEPHALITIS
     Dosage: UNKNOWN
     Route: 042
  6. LORAZEPAM. [Concomitant]
     Active Substance: LORAZEPAM
     Indication: GENERALISED TONIC-CLONIC SEIZURE
     Dosage: UNKNOWN
     Route: 042
  7. PREDNISOLONE. [Suspect]
     Active Substance: PREDNISOLONE
     Indication: ADRENAL INSUFFICIENCY
     Dosage: 5 MG ONCE-DAILY
     Route: 065
  8. METRONIDAZOLE. [Concomitant]
     Active Substance: METRONIDAZOLE
     Indication: PRODUCT USED FOR UNKNOWN INDICATION
     Dosage: UNKNOWN
     Route: 042
  9. PHENYTOIN. [Concomitant]
     Active Substance: PHENYTOIN
     Indication: ENCEPHALITIS
     Dosage: UNKNOWN
     Route: 042
  10. HYDROCORTISONE. [Suspect]
     Active Substance: HYDROCORTISONE
     Indication: ADRENAL INSUFFICIENCY
     Dosage: 10 MG ONCE-DAILY
     Route: 065

REACTIONS (6)
  - Strongyloidiasis [Fatal]
  - Intervertebral discitis [Unknown]
  - Adrenal insufficiency [Unknown]
  - Psoas abscess [Unknown]
  - Pneumonia [Unknown]
  - Pericardial effusion [Unknown]
